FAERS Safety Report 7816891-8 (Version None)
Quarter: 2011Q4

REPORT INFORMATION
  Report Type: 
  Country: None (occurrence: None)
  Receive Date: 20111017
  Receipt Date: 20111009
  Transmission Date: 20120403
  Serious: Yes (Death, Hospitalization, Other)
  Sender: FDA-Public Use
  Company Number: AR-GENZYME-CLOF-1001635

PATIENT
  Age: 6 Year
  Sex: Female

DRUGS (6)
  1. CLOLAR [Suspect]
     Indication: ACUTE LYMPHOCYTIC LEUKAEMIA RECURRENT
     Dosage: 40 MG/M2, QDX5 (CYCLE 1)
     Route: 065
     Dates: start: 20101102
  2. CYCLOPHOSPHAMIDE [Suspect]
     Indication: ACUTE LYMPHOCYTIC LEUKAEMIA RECURRENT
     Dosage: UNK (CYCLE 1)
     Route: 065
     Dates: start: 20101102
  3. CLOLAR [Suspect]
     Dosage: 40 MG/M2, QDX5 (CYCLE 2)
     Route: 065
  4. CYCLOPHOSPHAMIDE [Suspect]
     Dosage: UNK (CYCLE 2)
     Route: 065
  5. ETOPOSIDE [Suspect]
     Indication: ACUTE LYMPHOCYTIC LEUKAEMIA RECURRENT
     Dosage: UNK (CYCLE 1)
     Route: 065
     Dates: start: 20101102
  6. ETOPOSIDE [Suspect]
     Dosage: UNK (CYCLE 2)
     Route: 065

REACTIONS (3)
  - SEPSIS [None]
  - DEATH [None]
  - HAEMATOTOXICITY [None]
